FAERS Safety Report 11124373 (Version 1)
Quarter: 2015Q2

REPORT INFORMATION
  Report Type: Spontaneous
  Country: US (occurrence: US)
  Receive Date: 20150520
  Receipt Date: 20150520
  Transmission Date: 20150821
  Serious: Yes (Hospitalization)
  Sender: FDA-Public Use
  Company Number: US-TARO PHARMACEUTICALS U.S.A., INC-2015SUN01197

PATIENT
  Age: 91 Year
  Sex: Female

DRUGS (3)
  1. ENOXAPARIN [Suspect]
     Active Substance: ENOXAPARIN
     Dosage: UNK
     Route: 065
  2. WARFARIN [Suspect]
     Active Substance: WARFARIN
     Indication: PULMONARY EMBOLISM
     Dosage: UNK
     Route: 065
  3. RIVAROXABAN [Suspect]
     Active Substance: RIVAROXABAN
     Indication: PULMONARY EMBOLISM
     Dosage: UNK
     Route: 065

REACTIONS (7)
  - Hypovolaemia [Unknown]
  - International normalised ratio increased [Recovering/Resolving]
  - Haemoglobin decreased [Unknown]
  - Colitis ischaemic [Unknown]
  - Delirium [Unknown]
  - Acute kidney injury [Unknown]
  - Gastrointestinal haemorrhage [Unknown]
